FAERS Safety Report 4461743-7 (Version None)
Quarter: 2004Q3

REPORT INFORMATION
  Report Type: 
  Country: None (occurrence: None)
  Receive Date: 20040929
  Receipt Date: 20040921
  Transmission Date: 20050211
  Serious: Yes (Disabling)
  Sender: FDA-Public Use
  Company Number: US-JNJFOC-20040802413

PATIENT
  Sex: Female
  Weight: 93.9 kg

DRUGS (5)
  1. DITROPAN XL [Suspect]
     Indication: URINARY INCONTINENCE
     Route: 049
  2. LISINOPRIL [Concomitant]
     Indication: HYPERTENSION
     Route: 049
  3. LIPITOR [Concomitant]
     Route: 049
  4. METFORMIN HCL [Concomitant]
     Indication: DIABETES MELLITUS
     Route: 049
  5. AMARYL [Concomitant]
     Indication: DIABETES MELLITUS
     Route: 049

REACTIONS (2)
  - CONDITION AGGRAVATED [None]
  - MACULAR DEGENERATION [None]
